FAERS Safety Report 8555398-X (Version None)
Quarter: 2012Q3

REPORT INFORMATION
  Report Type: 
  Country: None (occurrence: None)
  Receive Date: 20120731
  Receipt Date: 20110801
  Transmission Date: 20120928
  Serious: No
  Sender: FDA-Public Use
  Company Number: US-ASTRAZENECA-2011SE39346

PATIENT
  Age: 51 Year
  Sex: Female
  Weight: 83 kg

DRUGS (6)
  1. XANAX XR [Concomitant]
  2. LAMICTAL [Concomitant]
  3. SEROQUEL XR [Suspect]
     Route: 048
     Dates: start: 20110608, end: 20110609
  4. SEROQUEL XR [Suspect]
     Indication: BIPOLAR DISORDER
     Route: 048
     Dates: start: 20110607, end: 20110607
  5. NEURONTIN [Concomitant]
  6. CYMBALTA [Concomitant]

REACTIONS (4)
  - BURNING SENSATION [None]
  - THINKING ABNORMAL [None]
  - MYALGIA [None]
  - FATIGUE [None]
